FAERS Safety Report 5009237-4 (Version None)
Quarter: 2006Q2

REPORT INFORMATION
  Report Type: 
  Country: None (occurrence: None)
  Receive Date: 20060519
  Receipt Date: 20060511
  Transmission Date: 20061013
  Serious: Yes (Disabling)
  Sender: FDA-Public Use
  Company Number: FR-2005-009459

PATIENT
  Age: 69 Year
  Sex: Female

DRUGS (4)
  1. SOTALOL HYDROCHLORIDE [Suspect]
     Dosage: 320 MG/D, ORAL
     Route: 048
  2. KARDEGIC /FRA/ (ACETYLSALICYLATE LYSINE) [Concomitant]
  3. CHONDROSULF (CHONDROITIN SULFATE SODIUM) [Concomitant]
  4. CALCIDOSE [Concomitant]

REACTIONS (3)
  - HYPERSENSITIVITY [None]
  - NASOPHARYNGITIS [None]
  - RHINITIS [None]
